FAERS Safety Report 8868597 (Version 1)
Quarter: 2012Q4

REPORT INFORMATION
  Report Type: 
  Country: US (occurrence: US)
  Receive Date: 20121026
  Receipt Date: 20121026
  Transmission Date: 20130627
  Serious: No
  Sender: FDA-Public Use
  Company Number: US-AMGEN-USASP2012046309

PATIENT
  Sex: Female

DRUGS (9)
  1. ENBREL [Suspect]
     Indication: PRODUCT USED FOR UNKNOWN INDICATION
     Dosage: 50 mg, qwk
     Route: 058
  2. GLUCOSAMINE [Concomitant]
     Dosage: 500 mg, UNK
  3. IBUPROFEN [Concomitant]
     Dosage: 200 mg, UNK
  4. VITAMIN E                          /00110501/ [Concomitant]
     Dosage: 100 unit, UNK
  5. MSM [Concomitant]
     Dosage: 1000 mg, UNK
  6. MULTIVITAMIN                       /00097801/ [Concomitant]
     Dosage: UNK
  7. CALCIUM +D                         /00188401/ [Concomitant]
     Dosage: UNK
  8. VITAMIN C                          /00008001/ [Concomitant]
     Dosage: 500 mg, UNK
  9. DEVIL^S CLAW [Concomitant]
     Dosage: 510 mg, UNK

REACTIONS (1)
  - Injection site pain [Unknown]
